FAERS Safety Report 5219993-8 (Version None)
Quarter: 2007Q1

REPORT INFORMATION
  Report Type: 
  Country: None (occurrence: None)
  Receive Date: 20061201
  Receipt Date: 20060719
  Transmission Date: 20070707
  Serious: No
  Sender: FDA-Public Use
  Company Number: 2006PV017860

PATIENT
  Age: 59 Year
  Sex: Female
  Weight: 90.7194 kg

DRUGS (6)
  1. BYETTA [Suspect]
     Indication: DIABETES MELLITUS NON-INSULIN-DEPENDENT
     Dosage: SEE IMAGE
     Route: 058
     Dates: start: 20060301, end: 20060101
  2. BYETTA [Suspect]
     Indication: DIABETES MELLITUS NON-INSULIN-DEPENDENT
     Dosage: SEE IMAGE
     Route: 058
     Dates: start: 20060401, end: 20060101
  3. BYETTA [Suspect]
     Indication: DIABETES MELLITUS NON-INSULIN-DEPENDENT
     Dosage: SEE IMAGE
     Route: 058
     Dates: start: 20060101
  4. METFORMIN HCL [Concomitant]
  5. CHROMIUM PICOLINATE [Concomitant]
  6. LANTUS [Concomitant]

REACTIONS (7)
  - BLOOD GLUCOSE INCREASED [None]
  - DISCOMFORT [None]
  - DIZZINESS [None]
  - DYSPEPSIA [None]
  - ERUCTATION [None]
  - INFLUENZA LIKE ILLNESS [None]
  - NAUSEA [None]
